FAERS Safety Report 4290083-4 (Version None)
Quarter: 2004Q1

REPORT INFORMATION
  Report Type: 
  Country: None (occurrence: None)
  Receive Date: 20040210
  Receipt Date: 20040107
  Transmission Date: 20041129
  Serious: No
  Sender: FDA-Public Use
  Company Number: 12478533

PATIENT
  Age: 71 Year
  Sex: Female

DRUGS (3)
  1. MEVALOTIN [Suspect]
     Dates: end: 20021011
  2. CHOLESTYRAMINE [Suspect]
     Dates: end: 20021011
  3. DISTIGMINE BROMIDE [Suspect]
     Indication: URINARY RETENTION
     Dates: start: 20010301, end: 20021013

REACTIONS (1)
  - RHABDOMYOLYSIS [None]
